FAERS Safety Report 15091241 (Version 1)
Quarter: 2018Q2

REPORT INFORMATION
  Report Type: Spontaneous
  Country: US (occurrence: US)
  Receive Date: 20180629
  Receipt Date: 20180629
  Transmission Date: 20180711
  Serious: No
  Sender: FDA-Public Use
  Company Number: US-AMGEN-USASP2015074154

PATIENT
  Age: 79 Year
  Sex: Female

DRUGS (1)
  1. PROLIA [Suspect]
     Active Substance: DENOSUMAB
     Indication: OSTEOPENIA
     Dosage: UNK, UNK
     Route: 065

REACTIONS (6)
  - Pharyngitis [Unknown]
  - Arthralgia [Unknown]
  - Tooth disorder [Unknown]
  - Tooth fracture [Unknown]
  - Arthritis [Unknown]
  - Blood glucose abnormal [Unknown]
